FAERS Safety Report 5078321-1 (Version None)
Quarter: 2006Q3

REPORT INFORMATION
  Report Type: 
  Country: None (occurrence: None)
  Receive Date: 20060720
  Receipt Date: 20060612
  Transmission Date: 20061208
  Serious: No
  Sender: FDA-Public Use
  Company Number: HQWYE212413JUN06

PATIENT
  Age: 85 Year
  Sex: Female
  Weight: 59.02 kg

DRUGS (5)
  1. ADVIL PM [Suspect]
     Indication: ARTHRITIS
     Dosage: 2 CAPLETS AS NEEDED, ORAL
     Route: 048
     Dates: start: 20060501, end: 20060608
  2. UNSPECIFIED ANTIHYPERTENSIVE AGENT (UNSPECIFIED ANTIHYPERTENSIVE AGENT [Concomitant]
  3. VYTORIN [Concomitant]
  4. HYZAAR [Concomitant]
  5. SYNTHROID [Concomitant]

REACTIONS (1)
  - PRURITUS GENERALISED [None]
